FAERS Safety Report 6125192-8 (Version None)
Quarter: 2009Q1

REPORT INFORMATION
  Report Type: 
  Country: None (occurrence: None)
  Receive Date: 20090317
  Receipt Date: 20090306
  Transmission Date: 20090719
  Serious: Yes (Other)
  Sender: FDA-Public Use
  Company Number: CHPA2009US06317

PATIENT
  Age: 41 Year
  Sex: Female
  Weight: 63.5 kg

DRUGS (4)
  1. BENEFIBER FIBER SUPPLEMENT SUGAR FREE (NCH)(GUAR GUM) POWDER [Suspect]
     Indication: NUTRITIONAL SUPPORT
     Dosage: 2 TSP, TID X 3 MONTHS, ORAL
     Route: 048
     Dates: start: 20030101, end: 20030101
  2. IRON (IRON) [Concomitant]
  3. CHEMOTHERAPEUTICS NOS (NO INGREDIENTS/SUBSTANCES) [Concomitant]
  4. RADIATION (NO INGREDIENTS/SUBSTANCES) [Concomitant]

REACTIONS (2)
  - CONCOMITANT DISEASE PROGRESSION [None]
  - NEOPLASM MALIGNANT [None]
